FAERS Safety Report 9850789 (Version 1)
Quarter: 2013Q4

REPORT INFORMATION
  Report Type: Spontaneous
  Country: US (occurrence: None)
  Receive Date: 20131226
  Receipt Date: 20131226
  Transmission Date: 20140711
  Serious: Yes (Death, Hospitalization, Other)
  Sender: FDA-Public Use
  Company Number: PHEH2012US013109

PATIENT
  Age: 68 Year
  Sex: Male

DRUGS (1)
  1. AFINITOR (RAD) [Suspect]
     Indication: MALIGNANT NEOPLASM OF ISLETS OF LANGERHANS
     Route: 048

REACTIONS (4)
  - Neoplasm [None]
  - Urinary tract infection [None]
  - Pneumonia [None]
  - Malignant neoplasm progression [None]
